FAERS Safety Report 14820232 (Version 1)
Quarter: 2018Q2

REPORT INFORMATION
  Report Type: Spontaneous
  Country: FR (occurrence: FR)
  Receive Date: 20180427
  Receipt Date: 20180427
  Transmission Date: 20180711
  Serious: Yes (Hospitalization)
  Sender: FDA-Public Use
  Company Number: FR-SA-2018SA119037

PATIENT
  Age: 25 Year
  Sex: Female

DRUGS (17)
  1. DALACINE [Concomitant]
     Active Substance: CLINDAMYCIN HYDROCHLORIDE
     Route: 065
     Dates: start: 20180128, end: 20180128
  2. VANCOMYCINE [Concomitant]
     Active Substance: VANCOMYCIN
     Route: 065
     Dates: start: 20180220, end: 20180227
  3. AZACTAM [Concomitant]
     Active Substance: AZTREONAM
     Route: 065
     Dates: start: 20180226, end: 20180301
  4. FLUCONAZOLE. [Concomitant]
     Active Substance: FLUCONAZOLE
     Route: 065
     Dates: start: 20180309, end: 20180320
  5. TAZOCILLINE [Concomitant]
     Active Substance: PIPERACILLIN SODIUM\TAZOBACTAM SODIUM
     Route: 065
     Dates: start: 20180131, end: 20180213
  6. CEFAZOLINE [Concomitant]
     Active Substance: CEFAZOLIN SODIUM
     Route: 065
     Dates: start: 20180108, end: 20180109
  7. ZYVOXID [Concomitant]
     Active Substance: LINEZOLID
     Route: 065
     Dates: start: 20180101, end: 20180108
  8. CEFAZOLINE [Concomitant]
     Active Substance: CEFAZOLIN SODIUM
     Route: 065
     Dates: start: 20180128, end: 20180131
  9. DAPTOMYCIN. [Concomitant]
     Active Substance: DAPTOMYCIN
     Route: 065
     Dates: start: 20180227, end: 20180303
  10. IMUREL [Suspect]
     Active Substance: AZATHIOPRINE SODIUM
     Indication: MUSCULAR WEAKNESS
     Route: 048
     Dates: start: 2011, end: 20180319
  11. DALACINE [Concomitant]
     Active Substance: CLINDAMYCIN HYDROCHLORIDE
     Route: 065
     Dates: start: 20180214, end: 20180220
  12. RIFADINE [Suspect]
     Active Substance: RIFAMPIN
     Indication: BACTERAEMIA
     Dosage: DOSE: 1 UNSPECIFIED UNIT
     Route: 048
     Dates: start: 20180111, end: 20180320
  13. CEFAZOLINE [Concomitant]
     Active Substance: CEFAZOLIN SODIUM
     Route: 065
     Dates: start: 20180214, end: 20180217
  14. OFLOXACIN. [Concomitant]
     Active Substance: OFLOXACIN
     Route: 065
     Dates: start: 20180108, end: 20180128
  15. ALFATIL [Concomitant]
     Active Substance: CEFACLOR
     Route: 065
     Dates: start: 20180217, end: 20180220
  16. CEFEPIME [Concomitant]
     Active Substance: CEFEPIME HYDROCHLORIDE
     Route: 065
     Dates: start: 20180220, end: 20180226
  17. MEROPENEM. [Concomitant]
     Active Substance: MEROPENEM
     Route: 065
     Dates: start: 20180301

REACTIONS (1)
  - Pancytopenia [Recovering/Resolving]

NARRATIVE: CASE EVENT DATE: 20180316
